FAERS Safety Report 5118931-6 (Version None)
Quarter: 2006Q3

REPORT INFORMATION
  Report Type: 
  Country: None (occurrence: None)
  Receive Date: 20060927
  Receipt Date: 20060818
  Transmission Date: 20061208
  Serious: Yes (Other)
  Sender: FDA-Public Use
  Company Number: 2006101198

PATIENT
  Sex: Male
  Weight: 81.6475 kg

DRUGS (7)
  1. VIAGRA [Suspect]
     Indication: ERECTILE DYSFUNCTION
     Dosage: (25 MG)
  2. DRAMAMINE [Suspect]
     Indication: MOTION SICKNESS
  3. MECLIZINE [Suspect]
     Indication: MOTION SICKNESS
  4. BONINE [Suspect]
     Indication: MOTION SICKNESS
  5. ALCOHOL (ETHANOL) [Suspect]
     Indication: DRUG USE FOR UNKNOWN INDICATION
  6. INDERAL [Concomitant]
  7. NORVASC [Concomitant]

REACTIONS (6)
  - ALCOHOL USE [None]
  - DIZZINESS POSTURAL [None]
  - HOT FLUSH [None]
  - HYPERHIDROSIS [None]
  - HYPOTENSION [None]
  - SYNCOPE [None]
